FAERS Safety Report 15380099 (Version 1)
Quarter: 2018Q3

REPORT INFORMATION
  Report Type: Report from Study
  Country: BD (occurrence: BD)
  Receive Date: 20180913
  Receipt Date: 20180913
  Transmission Date: 20181010
  Serious: Yes (Hospitalization)
  Sender: FDA-Public Use
  Company Number: BD-SA-2018SA248239

PATIENT
  Age: 53 Year
  Sex: Female
  Weight: 74 kg

DRUGS (1)
  1. INSULIN GLARGINE [Suspect]
     Active Substance: INSULIN GLARGINE
     Dosage: UNK
     Dates: start: 20081104

REACTIONS (7)
  - Angina unstable [Unknown]
  - Dermatitis [Unknown]
  - Urinary tract infection [Unknown]
  - Acute abdomen [Unknown]
  - Neuropathy peripheral [Unknown]
  - Rhinitis [Unknown]
  - Pyrexia [Unknown]
